FAERS Safety Report 9554015 (Version 2)
Quarter: 2013Q4

REPORT INFORMATION
  Report Type: Spontaneous
  Country: IT (occurrence: IT)
  Receive Date: 20130925
  Receipt Date: 20131125
  Transmission Date: 20140711
  Serious: Yes (Hospitalization)
  Sender: FDA-Public Use
  Company Number: PHHY2013IT106015

PATIENT
  Sex: Female

DRUGS (6)
  1. DOXORUBICIN [Suspect]
     Indication: LYMPHOMA
     Dosage: 80 MG/M2, UNK CYCLIC
     Route: 042
     Dates: start: 20130806, end: 20130806
  2. VINCRISTINE [Suspect]
     Indication: LYMPHOMA
     Dosage: 2 MG/M2, UNK CYCLIC
     Route: 042
     Dates: start: 20130806, end: 20130806
  3. CYCLOPHOSPHAMIDE [Suspect]
     Indication: LYMPHOMA
     Dosage: 1200 MG/M2, UNK CYCLIC
     Route: 042
     Dates: start: 20130806, end: 20130806
  4. RITUXIMAB [Suspect]
     Indication: LYMPHOMA
     Dosage: 600 MG/M2, UNK CYCLIC
     Route: 042
     Dates: start: 20130813, end: 20130813
  5. ACYCLOVIR [Suspect]
  6. ANTIBIOTICS [Suspect]

REACTIONS (3)
  - Confusional state [Unknown]
  - Mucosal inflammation [Unknown]
  - Renal failure acute [Unknown]
